FAERS Safety Report 25133533 (Version 1)
Quarter: 2025Q1

REPORT INFORMATION
  Report Type: Spontaneous
  Country: CN (occurrence: CN)
  Receive Date: 20250328
  Receipt Date: 20250328
  Transmission Date: 20250408
  Serious: Yes (Other)
  Sender: SANDOZ
  Company Number: CN-SANDOZ-SDZ2025CN018698

PATIENT
  Age: 84 Year
  Sex: Male
  Weight: 78 kg

DRUGS (5)
  1. MONTELUKAST SODIUM [Suspect]
     Active Substance: MONTELUKAST SODIUM
     Indication: Bronchitis
     Dosage: 10MG*5 TABLETS, QD, BEFORE BEDTIME
     Route: 048
     Dates: start: 20250316, end: 20250316
  2. AMBROXOL HYDROCHLORIDE [Concomitant]
     Active Substance: AMBROXOL HYDROCHLORIDE
     Indication: Bronchitis
     Dosage: 30MG*12 TABLETS, ORALLY AFTER MEALS
     Route: 048
     Dates: start: 20250316, end: 20250317
  3. AMINOPHYLLINE [Concomitant]
     Active Substance: AMINOPHYLLINE
     Indication: Bronchitis
     Dosage: 0.1G*12 TABLETS, TID, SUSTAINED-RELEASE TABLETS, ORALLY AFTER MEALS
     Route: 048
     Dates: start: 20250316, end: 20250317
  4. LEVOFLOXACIN [Concomitant]
     Active Substance: LEVOFLOXACIN
     Indication: Bronchitis
     Dosage: 0.25G*12 TABLETS, TID, AFTER MEALS
     Route: 048
     Dates: start: 20250316, end: 20250317
  5. LICORICE [Concomitant]
     Active Substance: LICORICE
     Indication: Bronchitis
     Dosage: COMPOUND 3 TABLET, TID
     Route: 048
     Dates: start: 20250316, end: 20250317

REACTIONS (1)
  - Dermatitis allergic [Recovering/Resolving]

NARRATIVE: CASE EVENT DATE: 20250317
